FAERS Safety Report 12095175 (Version 2)
Quarter: 2016Q1

REPORT INFORMATION
  Report Type: Spontaneous
  Country: GB (occurrence: GB)
  Receive Date: 20160219
  Receipt Date: 20160323
  Transmission Date: 20160526
  Serious: Yes (Other)
  Sender: FDA-Public Use
  Company Number: GB-REGENERON PHARMACEUTICALS, INC.-2016-12167

PATIENT

DRUGS (6)
  1. EYLEA [Suspect]
     Active Substance: AFLIBERCEPT
     Indication: NEOVASCULAR AGE-RELATED MACULAR DEGENERATION
     Dosage: UNK
     Dates: start: 20150511
  2. EYLEA [Suspect]
     Active Substance: AFLIBERCEPT
     Dosage: 4TH EYLEA INJECTION
     Dates: start: 20151112, end: 20151112
  3. BENDROFLUMETHIAZIDE [Concomitant]
     Active Substance: BENDROFLUMETHIAZIDE
     Indication: PRODUCT USED FOR UNKNOWN INDICATION
  4. SALBUTAMOL [Concomitant]
     Active Substance: ALBUTEROL
     Indication: PRODUCT USED FOR UNKNOWN INDICATION
  5. ASPIRIN                            /00002701/ [Concomitant]
     Active Substance: ASPIRIN
     Indication: PRODUCT USED FOR UNKNOWN INDICATION
  6. SIMVASTATIN. [Concomitant]
     Active Substance: SIMVASTATIN
     Indication: PRODUCT USED FOR UNKNOWN INDICATION

REACTIONS (8)
  - Retinal detachment [Unknown]
  - Non-infectious endophthalmitis [Unknown]
  - Vitreous haemorrhage [Unknown]
  - Visual impairment [Unknown]
  - Visual impairment [Recovering/Resolving]
  - Cataract [Unknown]
  - Vitreous floaters [Unknown]
  - Cataract [Unknown]

NARRATIVE: CASE EVENT DATE: 20151116
